FAERS Safety Report 6204774-9 (Version None)
Quarter: 2009Q2

REPORT INFORMATION
  Report Type: 
  Country: None (occurrence: None)
  Receive Date: 20090527
  Receipt Date: 20090514
  Transmission Date: 20091009
  Serious: Yes (Hospitalization)
  Sender: FDA-Public Use
  Company Number: FR-PFIZER INC-2009163216

PATIENT
  Age: 17 Year

DRUGS (6)
  1. XANAX [Suspect]
     Dosage: UNK
     Route: 048
     Dates: start: 20080827, end: 20080827
  2. VALIUM [Suspect]
     Dosage: UNK
     Route: 048
     Dates: start: 20080810, end: 20080827
  3. SERESTA [Suspect]
     Dosage: UNK
     Dates: start: 20080827, end: 20080827
  4. METHADONE [Suspect]
     Dosage: UNK
     Dates: start: 20070615
  5. TRAMADOL HCL [Suspect]
     Indication: DRUG USE FOR UNKNOWN INDICATION
     Dosage: 50 MG, UNK
     Dates: start: 20080827, end: 20080827
  6. ACETAMINOPHEN AND CODEINE PHOSPHATE [Suspect]
     Dosage: UNK
     Route: 048
     Dates: start: 20080827, end: 20080827

REACTIONS (2)
  - RESPIRATORY DEPRESSION [None]
  - SOMNOLENCE [None]
